FAERS Safety Report 8915851 (Version 3)
Quarter: 2013Q1

REPORT INFORMATION
  Report Type: Spontaneous
  Country: US (occurrence: US)
  Receive Date: 20121119
  Receipt Date: 20130107
  Transmission Date: 20140127
  Serious: Yes (Death, Hospitalization, Other)
  Sender: FDA-Public Use
  Company Number: US-PFIZER INC-2012285507

PATIENT
  Age: 72 Year
  Sex: Female

DRUGS (1)
  1. SOLU-MEDROL [Suspect]
     Dosage: UNK

REACTIONS (5)
  - General physical health deterioration [Fatal]
  - Dyspnoea [Unknown]
  - Cough [Unknown]
  - Pneumothorax [Unknown]
  - Blood pressure abnormal [Unknown]
